FAERS Safety Report 8993162 (Version 1)
Quarter: 2013Q1

REPORT INFORMATION
  Report Type: Spontaneous
  Country: EG (occurrence: EG)
  Receive Date: 20130102
  Receipt Date: 20130102
  Transmission Date: 20140127
  Serious: Yes (Other)
  Sender: FDA-Public Use
  Company Number: EG-ROCHE-1173711

PATIENT
  Sex: Female

DRUGS (4)
  1. HERCEPTIN [Suspect]
     Indication: BREAST CANCER
     Route: 041
     Dates: start: 201208
  2. CYCLOPHOSPHAMIDE [Concomitant]
  3. TAXOTERE [Concomitant]
  4. AVIL [Concomitant]

REACTIONS (1)
  - Systemic lupus erythematosus [Recovered/Resolved]
